FAERS Safety Report 7728207-6 (Version None)
Quarter: 2011Q3

REPORT INFORMATION
  Report Type: 
  Country: None (occurrence: None)
  Receive Date: 20110905
  Receipt Date: 20110822
  Transmission Date: 20111222
  Serious: Yes (Other)
  Sender: FDA-Public Use
  Company Number: PHHY2011US49482

PATIENT
  Age: 78 Year
  Sex: Female

DRUGS (18)
  1. LASIX [Concomitant]
     Dosage: UNK UKN, UNK
  2. ULTRAM [Concomitant]
     Dosage: UNK UKN, UNK
  3. CITRACAL [Concomitant]
     Dosage: UNK UKN, UNK
  4. FISH OIL [Concomitant]
     Dosage: UNK UKN, UNK
  5. RECLAST [Suspect]
     Indication: OSTEOPOROSIS
     Dosage: 5 MG, UNK
     Route: 042
     Dates: start: 20110413
  6. BENAZEPRIL HYDROCHLORIDE [Concomitant]
     Dosage: UNK UKN, UNK
  7. CELEBREX [Concomitant]
     Dosage: UNK UKN, UNK
  8. BIOTIN [Concomitant]
     Dosage: UNK UKN, UNK
  9. FLUVASTATIN [Concomitant]
     Dosage: UNK UKN, UNK
  10. VITAMIN D [Concomitant]
     Dosage: UNK UKN, UNK
  11. LOVASTATIN [Concomitant]
     Dosage: UNK UKN, UNK
  12. CARTIA XT [Concomitant]
     Dosage: UNK UKN, UNK
  13. MELOXICAM [Concomitant]
     Dosage: UNK UKN, UNK
  14. AMITRIPTYLINE HCL [Concomitant]
     Dosage: UNK UKN, UNK
  15. CALCIUM CITRATE [Concomitant]
     Dosage: UNK UKN, UNK
  16. METAMUCIL-2 [Concomitant]
     Dosage: UNK UKN, UNK
  17. ASPIRIN [Concomitant]
     Dosage: UNK UKN, UNK
  18. CENTRUM [Concomitant]
     Dosage: UNK UKN, UNK

REACTIONS (10)
  - PELVIC FRACTURE [None]
  - PAIN IN EXTREMITY [None]
  - PAIN [None]
  - GROIN PAIN [None]
  - MYALGIA [None]
  - FUNGAL INFECTION [None]
  - OEDEMA PERIPHERAL [None]
  - COUGH [None]
  - SPINAL FRACTURE [None]
  - RAYNAUD'S PHENOMENON [None]
